FAERS Safety Report 13981158 (Version 1)
Quarter: 2017Q3

REPORT INFORMATION
  Report Type: Spontaneous
  Country: US (occurrence: US)
  Receive Date: 20170918
  Receipt Date: 20170918
  Transmission Date: 20171128
  Serious: No
  Sender: FDA-Public Use
  Company Number: US-ASTRAZENECA-2017SE93102

PATIENT
  Sex: Female
  Weight: 91.8 kg

DRUGS (23)
  1. TRAMADOL. [Concomitant]
     Active Substance: TRAMADOL
  2. DULOXETINE. [Concomitant]
     Active Substance: DULOXETINE
  3. OXYCODONE-ACETAMINOPHEN [Concomitant]
     Active Substance: ACETAMINOPHEN\OXYCODONE HYDROCHLORIDE
  4. ARIMIDEX [Suspect]
     Active Substance: ANASTROZOLE
     Indication: BREAST CANCER FEMALE
     Route: 048
     Dates: end: 20150706
  5. TAXOL [Suspect]
     Active Substance: PACLITAXEL
     Indication: BREAST CANCER FEMALE
     Route: 065
  6. AROMASIN [Suspect]
     Active Substance: EXEMESTANE
     Indication: BREAST CANCER FEMALE
     Route: 048
     Dates: start: 20150707
  7. B COMPLETE [Concomitant]
     Route: 048
  8. DETROL [Concomitant]
     Active Substance: TOLTERODINE TARTRATE
     Dosage: 4.0MG UNKNOWN
  9. NEURONTIN [Concomitant]
     Active Substance: GABAPENTIN
  10. SENNA S [Concomitant]
     Active Substance: DOCUSATE SODIUM\SENNA LEAF
  11. VITAMIN B-6 [Concomitant]
     Active Substance: PYRIDOXINE
  12. VITAMIN C [Concomitant]
     Active Substance: ASCORBIC ACID
  13. COLACE [Concomitant]
     Active Substance: DOCUSATE SODIUM
  14. IBUPROFEN. [Concomitant]
     Active Substance: IBUPROFEN
  15. IRON [Concomitant]
     Active Substance: IRON
  16. XARELTO [Concomitant]
     Active Substance: RIVAROXABAN
  17. CELECOXIB. [Concomitant]
     Active Substance: CELECOXIB
  18. OXYBUTYNIN CHLORIDE. [Concomitant]
     Active Substance: OXYBUTYNIN CHLORIDE
  19. POTASSIUM CHLORIDE. [Concomitant]
     Active Substance: POTASSIUM CHLORIDE
  20. LOSARTAN POTASSIUM. [Concomitant]
     Active Substance: LOSARTAN POTASSIUM
  21. COMPAZINE [Concomitant]
     Active Substance: PROCHLORPERAZINE MALEATE
  22. LEVOTHYROXINE. [Concomitant]
     Active Substance: LEVOTHYROXINE
  23. MOMETASONE FUROATE. [Concomitant]
     Active Substance: MOMETASONE FUROATE

REACTIONS (20)
  - Vomiting [Not Recovered/Not Resolved]
  - Anaemia [Recovering/Resolving]
  - Diarrhoea [Not Recovered/Not Resolved]
  - Rash [Unknown]
  - Pain [Unknown]
  - Depression [Unknown]
  - Skin odour abnormal [Unknown]
  - Asthenia [Unknown]
  - Paraesthesia [Recovering/Resolving]
  - Gastric disorder [Unknown]
  - Insomnia [Not Recovered/Not Resolved]
  - Musculoskeletal pain [Unknown]
  - Fatigue [Unknown]
  - Nausea [Not Recovered/Not Resolved]
  - Hypoaesthesia [Recovering/Resolving]
  - Gait disturbance [Unknown]
  - Nasopharyngitis [Unknown]
  - Toxicity to various agents [Unknown]
  - Headache [Unknown]
  - Cough [Unknown]

NARRATIVE: CASE EVENT DATE: 2014
